FAERS Safety Report 13233578 (Version 1)
Quarter: 2017Q1

REPORT INFORMATION
  Report Type: Spontaneous
  Country: US (occurrence: US)
  Receive Date: 20170214
  Receipt Date: 20170214
  Transmission Date: 20170428
  Serious: No
  Sender: FDA-Public Use
  Company Number: None

PATIENT
  Age: 50 Year
  Sex: Female
  Weight: 93.52 kg

DRUGS (1)
  1. VANCO [Suspect]
     Active Substance: VANCOMYCIN
     Indication: DEVICE RELATED INFECTION
     Dosage: Q12
     Route: 042
     Dates: start: 20170128, end: 20170212

REACTIONS (1)
  - Dizziness [None]

NARRATIVE: CASE EVENT DATE: 20170209
